FAERS Safety Report 9008756 (Version 1)
Quarter: 2013Q1

REPORT INFORMATION
  Report Type: Spontaneous
  Country: US (occurrence: US)
  Receive Date: 20130111
  Receipt Date: 20130111
  Transmission Date: 20140127
  Serious: Yes (Hospitalization, Other)
  Sender: FDA-Public Use
  Company Number: US-009507513-1301USA001667

PATIENT
  Age: 55 Year
  Sex: Female

DRUGS (18)
  1. MONTELUKAST SODIUM [Suspect]
     Route: 048
  2. [THERAPY UNSPECIFIED] [Suspect]
     Indication: PRODUCT USED FOR UNKNOWN INDICATION
     Route: 048
  3. MORPHINE SULFATE [Suspect]
     Route: 048
  4. BUPRENORPHINE [Suspect]
     Route: 048
  5. DULOXETINE HYDROCHLORIDE [Suspect]
     Route: 048
  6. PENTOXIFYLLINE [Suspect]
     Route: 048
  7. [THERAPY UNSPECIFIED] [Suspect]
     Route: 048
  8. POTASSIUM [Suspect]
     Route: 048
  9. OXYCODONE HYDROCHLORIDE [Suspect]
     Route: 048
  10. TROGLITAZONE [Suspect]
     Route: 048
  11. DIURETIC [Suspect]
     Route: 048
  12. DICLOFENAC [Suspect]
     Route: 048
  13. [THERAPY UNSPECIFIED] [Suspect]
     Route: 048
  14. DOXYCYCLINE [Suspect]
     Route: 048
  15. [THERAPY UNSPECIFIED] [Suspect]
     Route: 048
  16. RIFAMPIN [Suspect]
     Route: 048
  17. CLOPIDOGREL BISULFATE [Suspect]
     Route: 048
  18. RANITIDINE [Suspect]
     Route: 048

REACTIONS (14)
  - Overdose [Unknown]
  - Myocardial infarction [Unknown]
  - Loss of consciousness [Unknown]
  - Lethargy [Unknown]
  - Haemoglobin decreased [Unknown]
  - Gastrointestinal disorder [Unknown]
  - Drug screen positive [Unknown]
  - Diarrhoea [Unknown]
  - Cough [Unknown]
  - Chromaturia [Unknown]
  - Blood potassium increased [Unknown]
  - Blood creatinine increased [Unknown]
  - Acidosis [Unknown]
  - Abdominal pain [Unknown]
